FAERS Safety Report 11087025 (Version 1)
Quarter: 2015Q2

REPORT INFORMATION
  Report Type: Report from Study
  Country: US (occurrence: None)
  Receive Date: 20150501
  Receipt Date: 20150501
  Transmission Date: 20150821
  Serious: Yes (Other)
  Sender: FDA-Public Use
  Company Number: US-2015CRT000352

PATIENT
  Age: 60 Year
  Sex: Female
  Weight: 113.4 kg

DRUGS (16)
  1. VALSARTAN/HYDROCHLOROTHIAZIDE [Concomitant]
     Active Substance: HYDROCHLOROTHIAZIDE\VALSARTAN
  2. POTASSIUM CHLORIDE. [Concomitant]
     Active Substance: POTASSIUM CHLORIDE
  3. DETROL LA [Suspect]
     Active Substance: TOLTERODINE TARTRATE
     Indication: PRODUCT USED FOR UNKNOWN INDICATION
  4. PANTOPRAZOLE [Concomitant]
     Active Substance: PANTOPRAZOLE SODIUM
  5. MUCINEX (GUAIFENESIN) [Concomitant]
  6. ASPIRIN (ACETYLSALICYLIC ACID) [Concomitant]
     Active Substance: ASPIRIN
  7. ATORVASTATIN [Concomitant]
     Active Substance: ATORVASTATIN
  8. XALATAN [Concomitant]
     Active Substance: LATANOPROST
  9. HYDROCODONE/APAP (HYDROCODONE BITARTRATE, PARACETAMOL) [Concomitant]
  10. KORLYM [Suspect]
     Active Substance: MIFEPRISTONE
     Indication: CUSHING^S SYNDROME
     Route: 048
     Dates: start: 20141126, end: 201412
  11. LEXAPRO [Concomitant]
     Active Substance: ESCITALOPRAM OXALATE
  12. GABAPENTIN. [Concomitant]
     Active Substance: GABAPENTIN
  13. DORZOLAMIDE [Concomitant]
     Active Substance: DORZOLAMIDE
  14. CIPRO /00697201/ (CIPROFLOXACIN) [Concomitant]
  15. TRAMADOL [Concomitant]
     Active Substance: TRAMADOL
  16. LORATADINE. [Concomitant]
     Active Substance: LORATADINE

REACTIONS (4)
  - Thyroid function test abnormal [None]
  - Intraocular pressure increased [None]
  - Hypothyroidism [None]
  - Peripheral swelling [None]

NARRATIVE: CASE EVENT DATE: 201412
